FAERS Safety Report 7657397-9 (Version None)
Quarter: 2011Q3

REPORT INFORMATION
  Report Type: 
  Country: None (occurrence: None)
  Receive Date: 20110804
  Receipt Date: 20110728
  Transmission Date: 20111222
  Serious: Yes (Hospitalization)
  Sender: FDA-Public Use
  Company Number: US-SANOFI-AVENTIS-2011SA044348

PATIENT
  Age: 73 Year
  Sex: Female
  Weight: 84 kg

DRUGS (13)
  1. AMLODIPINE [Concomitant]
  2. ENALAPRIL MALEATE [Concomitant]
  3. SIMVASTATIN [Concomitant]
     Dates: start: 20101208
  4. WARFARIN [Concomitant]
  5. FUROSEMIDE [Concomitant]
  6. POTASSIUM CHLORIDE [Concomitant]
     Dates: start: 20101208
  7. NORVASC [Concomitant]
     Dates: end: 20101208
  8. KEFLEX [Concomitant]
     Dates: start: 20101208, end: 20101215
  9. ASPIRIN [Concomitant]
  10. METFORMIN HCL [Concomitant]
  11. DRONEDARONE HCL [Suspect]
     Indication: ATRIAL FIBRILLATION
     Route: 048
     Dates: start: 20101123, end: 20101204
  12. LACTOBACILLUS ACIDOPHILUS/LACTOBACILLUS BULGARICUS [Concomitant]
     Dates: start: 20101208
  13. KEFLEX [Concomitant]
     Dates: start: 20101216

REACTIONS (1)
  - CARDIAC FAILURE [None]
